FAERS Safety Report 14033183 (Version 8)
Quarter: 2019Q4

REPORT INFORMATION
  Report Type: Spontaneous
  Country: US (occurrence: US)
  Receive Date: 20171003
  Receipt Date: 20191209
  Transmission Date: 20200122
  Serious: Yes (Other)
  Sender: FDA-Public Use
  Company Number: US-PFIZER INC-2017422528

PATIENT
  Age: 49 Year
  Sex: Female

DRUGS (26)
  1. OXYBUTYNIN. [Concomitant]
     Active Substance: OXYBUTYNIN CHLORIDE
     Indication: INCONTINENCE
     Dosage: 10 MG, AS NEEDED (1X PER DAY)
  2. ZANAFLEX [Concomitant]
     Active Substance: TIZANIDINE HYDROCHLORIDE
     Indication: MUSCLE RELAXANT THERAPY
     Dosage: UNK UNK, AS NEEDED (2-4 MG/1 EVERY 8 HRS)
  3. REFRESH OPTIVE [Concomitant]
     Active Substance: CARBOXYMETHYLCELLULOSE SODIUM\GLYCERIN
     Indication: DRY EYE
     Dosage: UNK UNK, DAILY(NUMEROUS TIMES/OPTIC)
  4. HUMALOG [Concomitant]
     Active Substance: INSULIN LISPRO
     Indication: TYPE 1 DIABETES MELLITUS
     Dosage: UNK, AS NEEDED [151-200 1 UNITS, 201-250 2 UNITS, 251-300 3 UNITS, 301-350 4 UNITS, 351-400 5 UNITS]
  5. ONDANSETRON [Concomitant]
     Active Substance: ONDANSETRON
     Indication: NAUSEA
     Dosage: UNK UNK, AS NEEDED (4-8 MG/1 EVERY 6-8 HOURS)
  6. RANITIDINE. [Concomitant]
     Active Substance: RANITIDINE
     Indication: DYSPEPSIA
     Dosage: 150 MG, UNK (1X EVERY 12 HRS/PRN OVER 15 AM +PM)
  7. SPIRONOLACTONE. [Concomitant]
     Active Substance: SPIRONOLACTONE
     Indication: FLUID RETENTION
     Dosage: 50 MG, AS NEEDED (1 EVERY DAY)
  8. LYRICA [Suspect]
     Active Substance: PREGABALIN
     Dosage: 75 MG, TWICE A DAY (AM AND BED/ AM AND PM)
     Route: 048
  9. BENADRYL [Concomitant]
     Active Substance: DIPHENHYDRAMINE HYDROCHLORIDE
     Indication: DYSTONIA
  10. PROTEIN [Concomitant]
     Active Substance: PROTEIN
     Indication: METABOLIC SURGERY
     Dosage: UNK, DAILY(60-80 GM PER DAY)
  11. VITAMIN D3 [Concomitant]
     Active Substance: CHOLECALCIFEROL
     Indication: VITAMIN D DEFICIENCY
     Dosage: 5000 IU, 1X/DAY(AM)
  12. LANTUS [Concomitant]
     Active Substance: INSULIN GLARGINE
     Indication: TYPE 1 DIABETES MELLITUS
     Dosage: UNK, 1X/DAY (22 AM/ AM)
  13. COLACE [Concomitant]
     Active Substance: DOCUSATE SODIUM
     Indication: PAIN
     Dosage: 200 MG, DAILY
  14. LYRICA [Suspect]
     Active Substance: PREGABALIN
     Indication: NEUROPATHY PERIPHERAL
     Dosage: 150 MG, TWICE A DAY
     Route: 048
  15. ATIVAN [Concomitant]
     Active Substance: LORAZEPAM
     Indication: DYSTONIA
     Dosage: 0.5 MG, AS NEEDED (1-2 TABLETS)
  16. IRON PLUS [FOLIC ACID;IRON] [Concomitant]
     Indication: METABOLIC SURGERY
     Dosage: 36 MG, 2X/DAY
  17. NAPROXEN. [Concomitant]
     Active Substance: NAPROXEN
     Indication: PAIN
     Dosage: 250 MG, AS NEEDED (1-2 EVERY 12 HOURS)
  18. VITAMIN C [Concomitant]
     Active Substance: ASCORBIC ACID
     Indication: IMMUNE SYSTEM DISORDER
     Dosage: 500 MG, 1X/DAY(AM)
  19. GLUCAGON. [Concomitant]
     Active Substance: GLUCAGON
     Indication: BLOOD GLUCOSE DECREASED
     Dosage: UNK
  20. BENADRYL [Concomitant]
     Active Substance: DIPHENHYDRAMINE HYDROCHLORIDE
     Indication: DRUG HYPERSENSITIVITY
     Dosage: UNK (DOSAGE: 25-50 MG; HOW MANY: EVERY 4-6 HRS/ CHEMO)
  21. BENEFIBER [Concomitant]
     Active Substance: STARCH, WHEAT
     Indication: CONSTIPATION
     Dosage: UNK UNK, AS NEEDED
  22. CALCIUM [Concomitant]
     Active Substance: CALCIUM
     Indication: METABOLIC SURGERY
     Dosage: 500 MG, 3X/DAY  (1 TABLET)
  23. OXYCODONE [Concomitant]
     Active Substance: OXYCODONE
     Indication: PAIN
     Dosage: UNK, AS NEEDED (2.5 OR 5MG/1X EVERY 4 HRS)
  24. VITAMIN B12 [Concomitant]
     Active Substance: CYANOCOBALAMIN
     Indication: METABOLIC SURGERY
     Dosage: 1000 UG, 1X/DAY (AM)
  25. LEVOTHYROXINE. [Concomitant]
     Active Substance: LEVOTHYROXINE
     Indication: THYROID DISORDER
     Dosage: 0.125 UG, 1X/DAY (AM)
  26. WATER. [Concomitant]
     Active Substance: WATER
     Dosage: UNK (64 OZ DAILY)

REACTIONS (6)
  - Contraindicated product administered [Unknown]
  - Product dispensing error [Unknown]
  - Neoplasm malignant [Unknown]
  - Drug hypersensitivity [Unknown]
  - Fatigue [Unknown]
  - Intentional product misuse [Unknown]
